FAERS Safety Report 8298074-3 (Version None)
Quarter: 2012Q2

REPORT INFORMATION
  Report Type: 
  Country: None (occurrence: None)
  Receive Date: 20120419
  Receipt Date: 20120405
  Transmission Date: 20120825
  Serious: Yes (Hospitalization, Other)
  Sender: FDA-Public Use
  Company Number: US-BAXTER-2012BH005642

PATIENT
  Sex: Male

DRUGS (2)
  1. DIANEAL [Suspect]
     Indication: PERITONEAL DIALYSIS
     Route: 033
  2. COCAINE [Suspect]
     Dates: start: 20120224

REACTIONS (8)
  - ARRHYTHMIA [None]
  - CONVULSION [None]
  - VENTRICULAR TACHYCARDIA [None]
  - ARTERIOSPASM CORONARY [None]
  - CHEST PAIN [None]
  - CARDIAC ARREST [None]
  - DYSPNOEA [None]
  - VENTRICULAR FIBRILLATION [None]
